FAERS Safety Report 12989574 (Version 1)
Quarter: 2016Q4

REPORT INFORMATION
  Report Type: Spontaneous
  Country: US (occurrence: US)
  Receive Date: 20161201
  Receipt Date: 20161201
  Transmission Date: 20170207
  Serious: No
  Sender: FDA-Public Use
  Company Number: US-PAR PHARMACEUTICAL, INC-2016SCPR015858

PATIENT
  Sex: Female

DRUGS (1)
  1. PROPAFENONE HCL ER [Suspect]
     Active Substance: PROPAFENONE
     Indication: ATRIAL FIBRILLATION
     Dosage: 1 DF, BID
     Route: 048

REACTIONS (5)
  - Dyspnoea [Unknown]
  - Palpitations [Unknown]
  - Fatigue [Unknown]
  - Weight increased [Unknown]
  - Drug ineffective [Unknown]
